FAERS Safety Report 4562734-8 (Version None)
Quarter: 2005Q1

REPORT INFORMATION
  Report Type: 
  Country: None (occurrence: None)
  Receive Date: 20050124
  Receipt Date: 20050112
  Transmission Date: 20050727
  Serious: Yes (Other)
  Sender: FDA-Public Use
  Company Number: DE-2005-000364

PATIENT
  Age: 37 Year
  Sex: Female

DRUGS (3)
  1. MIRENA [Suspect]
     Dosage: 20 UG/DAY, CONT, INTRA-UTERINE
     Route: 015
     Dates: start: 20020101
  2. FLUANXOL (FLUPENTIXOL DIHYDROCHLORIDE) [Concomitant]
  3. ZYPREXA [Concomitant]

REACTIONS (4)
  - BLOOD PROLACTIN INCREASED [None]
  - DEPRESSED MOOD [None]
  - GALACTORRHOEA [None]
  - PSYCHOTIC DISORDER [None]
